FAERS Safety Report 5919773-1 (Version None)
Quarter: 2008Q4

REPORT INFORMATION
  Report Type: 
  Country: None (occurrence: None)
  Receive Date: 20081015
  Receipt Date: 20081001
  Transmission Date: 20090506
  Serious: Yes (Hospitalization)
  Sender: FDA-Public Use
  Company Number: US-ELI_LILLY_AND_COMPANY-US200810000553

PATIENT
  Age: 61 Year
  Sex: Male

DRUGS (3)
  1. OLANZAPINE [Suspect]
     Indication: SCHIZOPHRENIA, PARANOID TYPE
     Dosage: 5 MG, DAILY (1/D)
     Route: 048
  2. OLANZAPINE [Suspect]
     Dosage: 20 MG, DAILY (1/D)
     Route: 048
  3. LORAZEPAM [Concomitant]
     Dosage: 1 MG, UNK

REACTIONS (2)
  - DRUG INEFFECTIVE [None]
  - PSYCHIATRIC SYMPTOM [None]
